FAERS Safety Report 23452331 (Version 1)
Quarter: 2024Q1

REPORT INFORMATION
  Report Type: Spontaneous
  Country: SK (occurrence: SK)
  Receive Date: 20240129
  Receipt Date: 20240129
  Transmission Date: 20240410
  Serious: Yes (Life-Threatening, Hospitalization, Other)
  Sender: FDA-Public Use
  Company Number: SK-TEVA-VS-3149086

PATIENT
  Age: 38 Year
  Sex: Female

DRUGS (1)
  1. METFORMIN [Suspect]
     Active Substance: METFORMIN HYDROCHLORIDE
     Indication: Suicidal ideation
     Dosage: TIME INTERVAL: TOTAL: PATIENT TOOK 40 TABLETS OF 850 MG METFORMIN
     Route: 065

REACTIONS (22)
  - Toxicity to various agents [Recovered/Resolved]
  - Intentional overdose [Recovered/Resolved]
  - Renal impairment [Recovered/Resolved]
  - Hypoglycaemia [Recovered/Resolved]
  - Vomiting [Recovered/Resolved]
  - Neutrophilia [Recovered/Resolved]
  - Altered state of consciousness [Recovered/Resolved]
  - Lactic acidosis [Recovered/Resolved]
  - Cardiovascular disorder [Recovered/Resolved]
  - Leukocytosis [Recovered/Resolved]
  - Sinus rhythm [Recovered/Resolved]
  - Ventricular extrasystoles [Recovered/Resolved]
  - Hypoproteinaemia [Recovered/Resolved]
  - Transaminases increased [Recovered/Resolved]
  - Blood creatinine increased [Recovered/Resolved]
  - Hypocapnia [Recovered/Resolved]
  - Hyperlactacidaemia [Recovered/Resolved]
  - Azotaemia [Recovered/Resolved]
  - Hyperamylasaemia [Recovered/Resolved]
  - Hypercoagulation [Recovered/Resolved]
  - Thrombocytopenia [Recovered/Resolved]
  - Liver disorder [Recovered/Resolved]
